FAERS Safety Report 5820090-9 (Version None)
Quarter: 2008Q3

REPORT INFORMATION
  Report Type: 
  Country: None (occurrence: None)
  Receive Date: 20080721
  Receipt Date: 20080708
  Transmission Date: 20090109
  Serious: Yes (Hospitalization)
  Sender: FDA-Public Use
  Company Number: 2008BI007803

PATIENT
  Age: 49 Year
  Sex: Female

DRUGS (21)
  1. TYSABRI [Suspect]
     Indication: MULTIPLE SCLEROSIS
     Dosage: 300 MG QM IV
     Route: 042
     Dates: start: 20050201
  2. TYSABRI [Suspect]
     Indication: MULTIPLE SCLEROSIS
     Dosage: 300 MG QM IV
     Route: 042
     Dates: start: 20060914
  3. DUONES [Concomitant]
  4. ELMIRON [Concomitant]
  5. LASIX [Concomitant]
  6. NEURONTIN [Concomitant]
  7. NORCO [Concomitant]
  8. REGLAN [Concomitant]
  9. PROVIGIL [Concomitant]
  10. MS CONTIN [Concomitant]
  11. AMBIEN [Concomitant]
  12. PAXIL [Concomitant]
  13. DOCUSATE [Concomitant]
  14. LORAZEPAM [Concomitant]
  15. CLONAZEPAM [Concomitant]
  16. ALBUTEROL [Concomitant]
  17. BACLOFEN [Concomitant]
  18. ATROVENT [Concomitant]
  19. COUMADIN [Concomitant]
  20. KEFLEX [Concomitant]
  21. TYSABRI [Suspect]

REACTIONS (9)
  - BLOOD URINE [None]
  - CATHETER RELATED INFECTION [None]
  - DECUBITUS ULCER [None]
  - KLEBSIELLA INFECTION [None]
  - PARAPARESIS [None]
  - RESPIRATORY FAILURE [None]
  - URINARY TRACT INFECTION STAPHYLOCOCCAL [None]
  - URINE OUTPUT DECREASED [None]
  - UROSEPSIS [None]
